FAERS Safety Report 8847099 (Version 2)
Quarter: 2013Q1

REPORT INFORMATION
  Report Type: Spontaneous
  Country: GB (occurrence: GB)
  Receive Date: 20121018
  Receipt Date: 20130111
  Transmission Date: 20140127
  Serious: Yes (Disabling, Other)
  Sender: FDA-Public Use
  Company Number: PHFR2010GB04144

PATIENT
  Sex: Female

DRUGS (11)
  1. CLOZARIL [Suspect]
     Indication: SCHIZOPHRENIA
     Dosage: 125 MG, QD
     Route: 048
     Dates: start: 20030222
  2. ASPIRIN ^BAYER^ [Concomitant]
     Indication: PROPHYLAXIS
     Dosage: 75 MG, QD
     Route: 048
  3. OMEPRAZOLE [Concomitant]
     Indication: PROPHYLAXIS
     Dosage: 20 MG/DAY
  4. TIOTROPIUM [Concomitant]
     Indication: CHRONIC OBSTRUCTIVE PULMONARY DISEASE
     Dosage: 18 UG/DAY
  5. SYMBICORT TURBUHALER ^DRACO^ [Concomitant]
     Indication: CHRONIC OBSTRUCTIVE PULMONARY DISEASE
     Dosage: UNK UKN, UNK
  6. BUMETANIDE [Concomitant]
     Indication: HYPERTENSION
     Dosage: UNK UKN, UNK
  7. ZOPICLONE [Concomitant]
     Indication: SLEEP DISORDER
     Dosage: 7.5 MG, QD
  8. ALENDRONIC ACID [Concomitant]
     Indication: OSTEOPOROSIS
     Dosage: 70 MG, QW
     Route: 048
  9. ADCAL-D3 [Concomitant]
     Indication: OSTEOPOROSIS
     Dosage: UNK UKN, UNK
  10. CITALOPRAM [Concomitant]
     Indication: DEPRESSION
     Dosage: 30 MG, QD
     Route: 048
  11. LATANOPROST [Concomitant]
     Indication: GLAUCOMA
     Dosage: 2 DF/DAY

REACTIONS (4)
  - Respiratory tract infection [Unknown]
  - Anaemia [Recovering/Resolving]
  - Haemoglobin decreased [Recovering/Resolving]
  - Platelet count increased [Recovering/Resolving]
